FAERS Safety Report 11178766 (Version 1)
Quarter: 2015Q2

REPORT INFORMATION
  Report Type: Spontaneous
  Country: US (occurrence: US)
  Receive Date: 20150610
  Receipt Date: 20150610
  Transmission Date: 20150821
  Serious: Yes (Other)
  Sender: FDA-Public Use
  Company Number: US-ASTRAZENECA-2015SE54460

PATIENT
  Age: 29 Year
  Sex: Female

DRUGS (46)
  1. ROSUVASTATIN [Suspect]
     Active Substance: ROSUVASTATIN
     Indication: TYPE IIA HYPERLIPIDAEMIA
     Dosage: DOSE6: 0.2 MG BY MOUTH SUSPENSION B (0.2 MG/2 ML)
     Route: 048
  2. ROSUVASTATIN [Suspect]
     Active Substance: ROSUVASTATIN
     Indication: IMMUNE TOLERANCE INDUCTION
     Dosage: DOSE7: 0.4 MG BY MOUTH SUSPENSION B (0.4 MG/4 ML)
     Route: 048
  3. ROSUVASTATIN [Suspect]
     Active Substance: ROSUVASTATIN
     Indication: IMMUNE TOLERANCE INDUCTION
     Dosage: DOSE11: 4 MG BY MOUTH SUSPENSION A (4 MG/8 ML)
     Route: 048
  4. ROSUVASTATIN [Suspect]
     Active Substance: ROSUVASTATIN
     Indication: TYPE IIA HYPERLIPIDAEMIA
     Dosage: DOSE12: 8 MG BY MOUTH SUSPENSION A (8 MG/16 ML)
     Route: 048
  5. ROSUVASTATIN [Suspect]
     Active Substance: ROSUVASTATIN
     Indication: TYPE IIA HYPERLIPIDAEMIA
     Route: 048
  6. EZETIMIBE. [Concomitant]
     Active Substance: EZETIMIBE
     Indication: TYPE IIA HYPERLIPIDAEMIA
  7. ROSUVASTATIN [Suspect]
     Active Substance: ROSUVASTATIN
     Indication: TYPE IIA HYPERLIPIDAEMIA
     Dosage: DOSE1: 0.01 MG BY MOUTH SUSPENSION C (0.01 MG/1 ML)
     Route: 048
  8. ROSUVASTATIN [Suspect]
     Active Substance: ROSUVASTATIN
     Indication: CAROTID INTIMA-MEDIA THICKNESS INCREASED
     Dosage: DOSE6: 0.2 MG BY MOUTH SUSPENSION B (0.2 MG/2 ML)
     Route: 048
  9. ROSUVASTATIN [Suspect]
     Active Substance: ROSUVASTATIN
     Indication: TYPE IIA HYPERLIPIDAEMIA
     Dosage: DOSE8: 0.8 MG BY MOUTH SUSPENSION B (0.8 MG/8 ML)
     Route: 048
  10. ROSUVASTATIN [Suspect]
     Active Substance: ROSUVASTATIN
     Indication: IMMUNE TOLERANCE INDUCTION
     Dosage: DOSE9: 1 MG BY MOUTH SUSPENSION A (1 MG/2 ML)
     Route: 048
  11. ROSUVASTATIN [Suspect]
     Active Substance: ROSUVASTATIN
     Indication: CAROTID INTIMA-MEDIA THICKNESS INCREASED
     Dosage: DOSE10: 2 MG BY MOUTH SUSPENSION A (2 MG/4 ML)
     Route: 048
  12. ROSUVASTATIN [Suspect]
     Active Substance: ROSUVASTATIN
     Indication: CAROTID INTIMA-MEDIA THICKNESS INCREASED
     Dosage: DOSE12: 8 MG BY MOUTH SUSPENSION A (8 MG/16 ML)
     Route: 048
  13. ROSUVASTATIN [Suspect]
     Active Substance: ROSUVASTATIN
     Indication: CAROTID INTIMA-MEDIA THICKNESS INCREASED
     Route: 048
  14. ROSUVASTATIN [Suspect]
     Active Substance: ROSUVASTATIN
     Indication: IMMUNE TOLERANCE INDUCTION
     Dosage: DOSE3: 0.04 MG BY MOUTH SUSPENSION C (0.04 MG/4 ML)
     Route: 048
  15. ROSUVASTATIN [Suspect]
     Active Substance: ROSUVASTATIN
     Indication: IMMUNE TOLERANCE INDUCTION
     Dosage: DOSE4: 0.08 MG BY MOUTH SUSPENSION C (0.08 MG/8 ML)
     Route: 048
  16. ROSUVASTATIN [Suspect]
     Active Substance: ROSUVASTATIN
     Indication: CAROTID INTIMA-MEDIA THICKNESS INCREASED
     Dosage: DOSE7: 0.4 MG BY MOUTH SUSPENSION B (0.4 MG/4 ML)
     Route: 048
  17. ROSUVASTATIN [Suspect]
     Active Substance: ROSUVASTATIN
     Indication: TYPE IIA HYPERLIPIDAEMIA
     Dosage: DOSE7: 0.4 MG BY MOUTH SUSPENSION B (0.4 MG/4 ML)
     Route: 048
  18. ROSUVASTATIN [Suspect]
     Active Substance: ROSUVASTATIN
     Indication: CAROTID INTIMA-MEDIA THICKNESS INCREASED
     Dosage: DOSE11: 4 MG BY MOUTH SUSPENSION A (4 MG/8 ML)
     Route: 048
  19. ROSUVASTATIN [Suspect]
     Active Substance: ROSUVASTATIN
     Indication: IMMUNE TOLERANCE INDUCTION
     Dosage: DOSE12: 8 MG BY MOUTH SUSPENSION A (8 MG/16 ML)
     Route: 048
  20. ROSUVASTATIN [Suspect]
     Active Substance: ROSUVASTATIN
     Indication: CAROTID INTIMA-MEDIA THICKNESS INCREASED
     Dosage: DOSE13: 10 MG BY MOUTH ONE 10-MG TABLET
     Route: 048
  21. COLESEVELAM [Concomitant]
     Active Substance: COLESEVELAM
     Indication: TYPE IIA HYPERLIPIDAEMIA
  22. ROSUVASTATIN [Suspect]
     Active Substance: ROSUVASTATIN
     Indication: CAROTID INTIMA-MEDIA THICKNESS INCREASED
     Dosage: DOSE1: 0.01 MG BY MOUTH SUSPENSION C (0.01 MG/1 ML)
     Route: 048
  23. ROSUVASTATIN [Suspect]
     Active Substance: ROSUVASTATIN
     Indication: CAROTID INTIMA-MEDIA THICKNESS INCREASED
     Dosage: DOSE2: 0.02 MG BY MOUTH SUSPENSION C (0.02 MG/2 ML)
     Route: 048
  24. ROSUVASTATIN [Suspect]
     Active Substance: ROSUVASTATIN
     Indication: TYPE IIA HYPERLIPIDAEMIA
     Dosage: DOSE3: 0.04 MG BY MOUTH SUSPENSION C (0.04 MG/4 ML)
     Route: 048
  25. ROSUVASTATIN [Suspect]
     Active Substance: ROSUVASTATIN
     Indication: IMMUNE TOLERANCE INDUCTION
     Dosage: DOSE2: 0.02 MG BY MOUTH SUSPENSION C (0.02 MG/2 ML)
     Route: 048
  26. ROSUVASTATIN [Suspect]
     Active Substance: ROSUVASTATIN
     Indication: TYPE IIA HYPERLIPIDAEMIA
     Dosage: DOSE2: 0.02 MG BY MOUTH SUSPENSION C (0.02 MG/2 ML)
     Route: 048
  27. ROSUVASTATIN [Suspect]
     Active Substance: ROSUVASTATIN
     Indication: CAROTID INTIMA-MEDIA THICKNESS INCREASED
     Dosage: DOSE3: 0.04 MG BY MOUTH SUSPENSION C (0.04 MG/4 ML)
     Route: 048
  28. ROSUVASTATIN [Suspect]
     Active Substance: ROSUVASTATIN
     Indication: TYPE IIA HYPERLIPIDAEMIA
     Dosage: DOSE4: 0.08 MG BY MOUTH SUSPENSION C (0.08 MG/8 ML)
     Route: 048
  29. ROSUVASTATIN [Suspect]
     Active Substance: ROSUVASTATIN
     Indication: IMMUNE TOLERANCE INDUCTION
     Dosage: DOSE5: 0.1 MG BY MOUTH SUSPENSION B (0.1 MG/1 ML)
     Route: 048
  30. ROSUVASTATIN [Suspect]
     Active Substance: ROSUVASTATIN
     Indication: IMMUNE TOLERANCE INDUCTION
     Dosage: DOSE6: 0.2 MG BY MOUTH SUSPENSION B (0.2 MG/2 ML)
     Route: 048
  31. ROSUVASTATIN [Suspect]
     Active Substance: ROSUVASTATIN
     Indication: CAROTID INTIMA-MEDIA THICKNESS INCREASED
     Dosage: DOSE8: 0.8 MG BY MOUTH SUSPENSION B (0.8 MG/8 ML)
     Route: 048
  32. ROSUVASTATIN [Suspect]
     Active Substance: ROSUVASTATIN
     Indication: CAROTID INTIMA-MEDIA THICKNESS INCREASED
     Dosage: DOSE9: 1 MG BY MOUTH SUSPENSION A (1 MG/2 ML)
     Route: 048
  33. ROSUVASTATIN [Suspect]
     Active Substance: ROSUVASTATIN
     Indication: IMMUNE TOLERANCE INDUCTION
     Dosage: DOSE10: 2 MG BY MOUTH SUSPENSION A (2 MG/4 ML)
     Route: 048
  34. ROSUVASTATIN [Suspect]
     Active Substance: ROSUVASTATIN
     Indication: IMMUNE TOLERANCE INDUCTION
     Route: 048
  35. COLESEVELAM [Concomitant]
     Active Substance: COLESEVELAM
     Indication: CAROTID INTIMA-MEDIA THICKNESS INCREASED
  36. ROSUVASTATIN [Suspect]
     Active Substance: ROSUVASTATIN
     Indication: CAROTID INTIMA-MEDIA THICKNESS INCREASED
     Dosage: DOSE4: 0.08 MG BY MOUTH SUSPENSION C (0.08 MG/8 ML)
     Route: 048
  37. ROSUVASTATIN [Suspect]
     Active Substance: ROSUVASTATIN
     Indication: TYPE IIA HYPERLIPIDAEMIA
     Dosage: DOSE9: 1 MG BY MOUTH SUSPENSION A (1 MG/2 ML)
     Route: 048
  38. ROSUVASTATIN [Suspect]
     Active Substance: ROSUVASTATIN
     Indication: TYPE IIA HYPERLIPIDAEMIA
     Dosage: DOSE11: 4 MG BY MOUTH SUSPENSION A (4 MG/8 ML)
     Route: 048
  39. ROSUVASTATIN [Suspect]
     Active Substance: ROSUVASTATIN
     Indication: IMMUNE TOLERANCE INDUCTION
     Dosage: DOSE13: 10 MG BY MOUTH ONE 10-MG TABLET
     Route: 048
  40. ROSUVASTATIN [Suspect]
     Active Substance: ROSUVASTATIN
     Indication: CAROTID INTIMA-MEDIA THICKNESS INCREASED
     Dosage: DOSE5: 0.1 MG BY MOUTH SUSPENSION B (0.1 MG/1 ML)
     Route: 048
  41. ROSUVASTATIN [Suspect]
     Active Substance: ROSUVASTATIN
     Indication: TYPE IIA HYPERLIPIDAEMIA
     Dosage: DOSE5: 0.1 MG BY MOUTH SUSPENSION B (0.1 MG/1 ML)
     Route: 048
  42. ROSUVASTATIN [Suspect]
     Active Substance: ROSUVASTATIN
     Indication: TYPE IIA HYPERLIPIDAEMIA
     Dosage: DOSE10: 2 MG BY MOUTH SUSPENSION A (2 MG/4 ML)
     Route: 048
  43. ROSUVASTATIN [Suspect]
     Active Substance: ROSUVASTATIN
     Indication: TYPE IIA HYPERLIPIDAEMIA
     Dosage: DOSE13: 10 MG BY MOUTH ONE 10-MG TABLET
     Route: 048
  44. ROSUVASTATIN [Suspect]
     Active Substance: ROSUVASTATIN
     Indication: IMMUNE TOLERANCE INDUCTION
     Dosage: DOSE1: 0.01 MG BY MOUTH SUSPENSION C (0.01 MG/1 ML)
     Route: 048
  45. ROSUVASTATIN [Suspect]
     Active Substance: ROSUVASTATIN
     Indication: IMMUNE TOLERANCE INDUCTION
     Dosage: DOSE8: 0.8 MG BY MOUTH SUSPENSION B (0.8 MG/8 ML)
     Route: 048
  46. EZETIMIBE. [Concomitant]
     Active Substance: EZETIMIBE
     Indication: CAROTID INTIMA-MEDIA THICKNESS INCREASED

REACTIONS (4)
  - Throat irritation [Recovered/Resolved]
  - Flushing [Recovered/Resolved]
  - Cough [Recovered/Resolved]
  - Pruritus [Unknown]

NARRATIVE: CASE EVENT DATE: 20140123
